FAERS Safety Report 11597774 (Version 1)
Quarter: 2015Q4

REPORT INFORMATION
  Report Type: Spontaneous
  Country: GB (occurrence: GB)
  Receive Date: 20151006
  Receipt Date: 20151006
  Transmission Date: 20160304
  Serious: Yes (Hospitalization)
  Sender: FDA-Public Use
  Company Number: GB-HQ SPECIALTY-GB-2015INT000576

PATIENT
  Sex: Female

DRUGS (5)
  1. CAPECITABINE. [Suspect]
     Active Substance: CAPECITABINE
     Indication: OVARIAN EPITHELIAL CANCER
     Dosage: 650 MG/M2, BID, STARTING ON THE EVENING OF DAY 1
     Route: 048
  2. DEXAMETHASONE. [Concomitant]
     Active Substance: DEXAMETHASONE
     Indication: PROPHYLAXIS OF NAUSEA AND VOMITING
     Dosage: UNK
  3. EPIRUBICIN [Suspect]
     Active Substance: EPIRUBICIN
     Indication: OVARIAN EPITHELIAL CANCER
     Dosage: 50 MG/M2, BOLUS DOSE ON DAY 1
  4. ONDANSETRON [Concomitant]
     Active Substance: ONDANSETRON
     Indication: PROPHYLAXIS OF NAUSEA AND VOMITING
     Dosage: UNK
  5. CISPLATIN. [Suspect]
     Active Substance: CISPLATIN
     Indication: OVARIAN EPITHELIAL CANCER
     Dosage: 60 MG/M2, AS A 3 HOUR INFUSION

REACTIONS (2)
  - Febrile neutropenia [Unknown]
  - Infection [Unknown]
